FAERS Safety Report 11519043 (Version 2)
Quarter: 2016Q3

REPORT INFORMATION
  Report Type: Spontaneous
  Country: US (occurrence: US)
  Receive Date: 20150917
  Receipt Date: 20160919
  Transmission Date: 20161109
  Serious: No
  Sender: FDA-Public Use
  Company Number: US-ALLERGAN-1514174US

PATIENT
  Sex: Female
  Weight: 72.56 kg

DRUGS (6)
  1. LOSARTAN AND HYDROCHLOROTHIAZIDE [Concomitant]
     Active Substance: HYDROCHLOROTHIAZIDE\LOSARTAN POTASSIUM
     Indication: HYPERTENSION
     Dosage: 1 DF, QD
  2. TIMOLOL. [Concomitant]
     Active Substance: TIMOLOL
     Indication: GLAUCOMA
     Dosage: 1 DF, QD
     Dates: start: 2003
  3. VANIQA [Suspect]
     Active Substance: EFLORNITHINE HYDROCHLORIDE
     Indication: HIRSUTISM
     Dosage: UNK UNK, BID
     Route: 061
     Dates: start: 200507, end: 20150828
  4. VANIQA [Suspect]
     Active Substance: EFLORNITHINE HYDROCHLORIDE
     Dosage: UNK UNK, BID
     Route: 061
     Dates: start: 200507, end: 20150828
  5. PRAVACHOL [Concomitant]
     Active Substance: PRAVASTATIN SODIUM
     Indication: BLOOD CHOLESTEROL INCREASED
     Dosage: 1 DF, QD
  6. TRAVATAN [Concomitant]
     Active Substance: TRAVOPROST
     Indication: GLAUCOMA
     Dosage: 1 DF, QD
     Dates: start: 2003

REACTIONS (2)
  - Hair growth abnormal [Unknown]
  - Drug effect decreased [Unknown]
